FAERS Safety Report 8116984-4 (Version None)
Quarter: 2012Q1

REPORT INFORMATION
  Report Type: 
  Country: None (occurrence: None)
  Receive Date: 20120206
  Receipt Date: 20120119
  Transmission Date: 20120608
  Serious: Yes (Other)
  Sender: FDA-Public Use
  Company Number: NO-ROCHE-1034850

PATIENT
  Sex: Female
  Weight: 68 kg

DRUGS (13)
  1. XOLAIR [Suspect]
     Indication: HYPERSENSITIVITY
  2. PREDNISOLONE [Concomitant]
  3. XOLAIR [Suspect]
     Indication: ASTHMA
     Dates: start: 20110501
  4. SINGULAIR [Concomitant]
  5. NUELIN [Concomitant]
  6. LOVAZA [Concomitant]
  7. ATROVENT [Concomitant]
  8. LIPITOR [Concomitant]
  9. ZYRTEC [Concomitant]
  10. TRISEQUENS [Concomitant]
  11. ACETYLSALICYLIC ACID SRT [Concomitant]
  12. VITAMIN B-12 [Concomitant]
  13. VENTOLIN [Concomitant]

REACTIONS (13)
  - CHILLS [None]
  - VISION BLURRED [None]
  - HEADACHE [None]
  - MALAISE [None]
  - HYPERSOMNIA [None]
  - SERUM SICKNESS [None]
  - DYSPNOEA [None]
  - ALOPECIA [None]
  - HEART RATE INCREASED [None]
  - DERMATITIS PSORIASIFORM [None]
  - EYE SWELLING [None]
  - PRURITUS [None]
  - VISUAL IMPAIRMENT [None]
